FAERS Safety Report 9203101 (Version 2)
Quarter: 2013Q3

REPORT INFORMATION
  Report Type: Report from Study
  Country: GB (occurrence: GB)
  Receive Date: 20130402
  Receipt Date: 20130809
  Transmission Date: 20140515
  Serious: Yes (Hospitalization, Other)
  Sender: FDA-Public Use
  Company Number: GB-009507513-1303GBR013788

PATIENT
  Age: 58 Year
  Sex: Male
  Weight: 82.2 kg

DRUGS (15)
  1. DEXAMETHASONE SODIUM PHOSPHATE [Suspect]
     Indication: PLASMA CELL MYELOMA
     Dosage: 28 MG, QD
     Route: 048
     Dates: start: 20120207
  2. ELOTUZUMAB [Suspect]
     Indication: PLASMA CELL MYELOMA
     Dosage: 825 MG, QD
     Route: 041
     Dates: start: 20120207, end: 20120228
  3. REVLIMID [Suspect]
     Indication: PLASMA CELL MYELOMA
     Dosage: 25 MG, QD
     Route: 048
     Dates: start: 20120207, end: 20120228
  4. ACYCLOVIR [Concomitant]
     Dosage: UNK
     Route: 065
     Dates: start: 20120207
  5. ALLOPURINOL [Concomitant]
     Dosage: UNK
     Route: 065
     Dates: start: 20120207, end: 20120306
  6. ASPIRINE [Concomitant]
     Dosage: UNK
     Route: 065
     Dates: start: 20120207
  7. DALTEPARIN SODIUM [Concomitant]
     Indication: THROMBOSIS PROPHYLAXIS
     Dosage: UNK
     Route: 065
     Dates: start: 20120220, end: 20120223
  8. FLUOXETINE [Concomitant]
     Dosage: 20 MG, UNK
     Route: 065
     Dates: start: 20120416, end: 20120709
  9. FLUOXETINE [Concomitant]
     Dosage: UNK
     Route: 065
     Dates: start: 2008, end: 20120615
  10. LANSOPRAZOLE [Concomitant]
     Dosage: UNK
     Route: 065
     Dates: start: 20120207
  11. MORPHINE [Concomitant]
     Dosage: 10 ML, UNK
     Route: 065
     Dates: start: 20120202
  12. OXYCONTIN [Concomitant]
     Indication: BACK PAIN
     Dosage: UNK
     Route: 065
     Dates: start: 2009
  13. ACETAMINOPHEN [Concomitant]
     Dosage: 500 MG, UNK
     Route: 065
     Dates: start: 20120214, end: 20120310
  14. DOCUSATE SODIUM [Concomitant]
     Dosage: UNK
     Route: 065
     Dates: start: 20120207
  15. ZOLEDRONIC ACID [Concomitant]
     Indication: PLATELET COUNT DECREASED
     Dosage: UNK
     Route: 041
     Dates: start: 20130220, end: 20130320

REACTIONS (3)
  - Pyrexia [Recovered/Resolved]
  - Thrombocytopenia [Recovered/Resolved]
  - Arthralgia [Recovered/Resolved]
